FAERS Safety Report 4310337-2 (Version None)
Quarter: 2004Q1

REPORT INFORMATION
  Report Type: 
  Country: None (occurrence: None)
  Receive Date: 20040303
  Receipt Date: 20040114
  Transmission Date: 20041129
  Serious: Yes (Hospitalization)
  Sender: FDA-Public Use
  Company Number: DE-BRISTOL-MYERS SQUIBB COMPANY-12478855

PATIENT
  Age: 62 Year
  Sex: Male
  Weight: 83 kg

DRUGS (6)
  1. TAXOL [Suspect]
     Indication: NON-SMALL CELL LUNG CANCER
     Dosage: THERAPY DATES: 26-JUN-2003 TO 31-JUL-2003 + 21-AUG-2003 TO 04-SEP-2003
     Route: 042
     Dates: start: 20030904, end: 20030904
  2. CARBOPLATIN [Suspect]
     Indication: NON-SMALL CELL LUNG CANCER
     Dosage: THERAPY DATES: 26-JUN-2003 TO 31-JUL-2003 + 21-AUG-2003 TO 04-SEP-2003
     Route: 042
     Dates: start: 20030904, end: 20030904
  3. GRANISETRON [Concomitant]
     Indication: PREMEDICATION
     Dates: start: 20030904, end: 20030904
  4. RANITIDINE [Concomitant]
     Indication: PREMEDICATION
     Dates: start: 20030904, end: 20030904
  5. CLEMASTINE [Concomitant]
     Indication: PREMEDICATION
     Dates: start: 20030904, end: 20030904
  6. DEXAMETHASONE [Concomitant]
     Indication: PREMEDICATION
     Dates: start: 20030904, end: 20030904

REACTIONS (2)
  - PNEUMONIA [None]
  - WEIGHT DECREASED [None]
